FAERS Safety Report 15500883 (Version 2)
Quarter: 2018Q4

REPORT INFORMATION
  Report Type: Report from Study
  Country: US (occurrence: US)
  Receive Date: 20181015
  Receipt Date: 20181022
  Transmission Date: 20190205
  Serious: Yes (Hospitalization, Other)
  Sender: FDA-Public Use
  Company Number: US-SHIRE-US201838200

PATIENT
  Age: 58 Year
  Sex: Female
  Weight: 87.98 kg

DRUGS (1)
  1. CUVITRU [Suspect]
     Active Substance: HUMAN IMMUNOGLOBULIN G
     Indication: IMMUNODEFICIENCY
     Dosage: 23 G, 1X/2WKS
     Route: 058
     Dates: start: 20180907, end: 20181001

REACTIONS (6)
  - Cyst [Recovering/Resolving]
  - Swelling face [Recovering/Resolving]
  - Lymphadenopathy [Recovering/Resolving]
  - Abscess neck [Not Recovered/Not Resolved]
  - Abdominal pain lower [Recovering/Resolving]
  - Acne [Recovering/Resolving]

NARRATIVE: CASE EVENT DATE: 20180928
